FAERS Safety Report 13512765 (Version 2)
Quarter: 2017Q2

REPORT INFORMATION
  Report Type: Report from Study
  Country: None (occurrence: BR)
  Receive Date: 20170504
  Receipt Date: 20170523
  Transmission Date: 20170830
  Serious: Yes (Disabling, Other)
  Sender: FDA-Public Use
  Company Number: BR-ABBVIE-17K-020-1957799-00

PATIENT
  Sex: Male

DRUGS (3)
  1. HUMIRA [Suspect]
     Active Substance: ADALIMUMAB
     Route: 058
     Dates: start: 201704
  2. HUMIRA [Suspect]
     Active Substance: ADALIMUMAB
     Indication: UVEITIS
     Dosage: WEEK 0
     Route: 058
     Dates: start: 20170404, end: 20170404
  3. HUMIRA [Suspect]
     Active Substance: ADALIMUMAB
     Dosage: WEEK 2
     Route: 058
     Dates: start: 201704, end: 201704

REACTIONS (5)
  - Therapeutic response unexpected [Unknown]
  - Headache [Not Recovered/Not Resolved]
  - Pre-existing condition improved [Unknown]
  - Dry eye [Unknown]
  - Visual impairment [Recovered/Resolved]
